FAERS Safety Report 4956436-3 (Version None)
Quarter: 2006Q1

REPORT INFORMATION
  Report Type: 
  Country: None (occurrence: None)
  Receive Date: 20060328
  Receipt Date: 20060328
  Transmission Date: 20060701
  Serious: Yes (Disabling)
  Sender: FDA-Public Use
  Company Number: None

PATIENT
  Age: 31 Year
  Sex: Female
  Weight: 61.2 kg

DRUGS (1)
  1. DEMEROL [Suspect]
     Indication: COLONOSCOPY
     Dosage: 50 MG ONE TIME IV BOLUS
     Route: 040
     Dates: start: 20060325, end: 20060325

REACTIONS (2)
  - INFUSION RELATED REACTION [None]
  - RASH MACULAR [None]
